FAERS Safety Report 9478588 (Version 2)
Quarter: 2013Q3

REPORT INFORMATION
  Report Type: Spontaneous
  Country: GB (occurrence: GB)
  Receive Date: 20130827
  Receipt Date: 20130827
  Transmission Date: 20140515
  Serious: Yes (Other)
  Sender: FDA-Public Use
  Company Number: GB-TEVA-422747ISR

PATIENT
  Age: 57 Year
  Sex: Male
  Weight: 120 kg

DRUGS (3)
  1. METHOTREXATE [Suspect]
     Indication: PSORIASIS
     Dosage: DOSAGE FORM: UNSPECIFIED
     Route: 048
     Dates: end: 201306
  2. STELARA [Suspect]
     Indication: PSORIASIS
     Dosage: DOSAGE FORM: LIQUID
     Route: 058
     Dates: start: 201203
  3. COLECALCIFEROL [Concomitant]
     Indication: OSTEOPOROSIS
     Route: 048

REACTIONS (2)
  - Hepatic steatosis [Unknown]
  - Psoriasis [Not Recovered/Not Resolved]
